FAERS Safety Report 10248610 (Version 3)
Quarter: 2014Q3

REPORT INFORMATION
  Report Type: Spontaneous
  Country: JP (occurrence: JP)
  Receive Date: 20140620
  Receipt Date: 20140707
  Transmission Date: 20150326
  Serious: Yes (Other)
  Sender: FDA-Public Use
  Company Number: PHHY2014JP076093

PATIENT
  Sex: Female

DRUGS (2)
  1. ZOMETA [Suspect]
     Active Substance: ZOLEDRONIC ACID
     Indication: PLASMA CELL MYELOMA
     Dosage: 5 MG, PER ADMINISTRATION
     Route: 041
     Dates: start: 201203, end: 201403
  2. REVLIMID [Concomitant]
     Active Substance: LENALIDOMIDE
     Dosage: UNK UKN, UNK
     Route: 048
     Dates: start: 201203, end: 201403

REACTIONS (2)
  - Osteonecrosis of jaw [Not Recovered/Not Resolved]
  - Bone swelling [Unknown]

NARRATIVE: CASE EVENT DATE: 201406
